FAERS Safety Report 7404204-5 (Version None)
Quarter: 2011Q2

REPORT INFORMATION
  Report Type: 
  Country: None (occurrence: None)
  Receive Date: 20110408
  Receipt Date: 20110216
  Transmission Date: 20111010
  Serious: Yes (Hospitalization)
  Sender: FDA-Public Use
  Company Number: US-BAYER-201027639NA

PATIENT
  Age: 35 Year
  Sex: Female
  Weight: 73 kg

DRUGS (8)
  1. ACETAMINOPHEN [Concomitant]
  2. ASPIRIN [Concomitant]
  3. ACETAMINOPHEN [Concomitant]
  4. IBUPROFEN [Concomitant]
     Dosage: 800 MG, UNK
     Dates: start: 20070726
  5. YAZ [Suspect]
     Indication: PREMENSTRUAL SYNDROME
  6. YAZ [Suspect]
     Indication: ORAL CONTRACEPTION
  7. YAZ [Suspect]
     Indication: MENSTRUAL CYCLE MANAGEMENT
     Route: 048
     Dates: start: 20070401, end: 20070701
  8. VITAMIN K TAB [Concomitant]

REACTIONS (17)
  - DEEP VEIN THROMBOSIS [None]
  - SWELLING [None]
  - PAIN IN EXTREMITY [None]
  - OEDEMA PERIPHERAL [None]
  - PANIC ATTACK [None]
  - RESPIRATORY TRACT CONGESTION [None]
  - PAIN [None]
  - CHEST DISCOMFORT [None]
  - CHEST PAIN [None]
  - PULMONARY EMBOLISM [None]
  - HYPOAESTHESIA [None]
  - ARTHRALGIA [None]
  - ANXIETY [None]
  - FACIAL PAIN [None]
  - SENSATION OF HEAVINESS [None]
  - DYSPNOEA [None]
  - MUSCULOSKELETAL STIFFNESS [None]
